FAERS Safety Report 7073578-X (Version None)
Quarter: 2010Q4

REPORT INFORMATION
  Report Type: 
  Country: None (occurrence: None)
  Receive Date: 20101029
  Receipt Date: 20100831
  Transmission Date: 20110411
  Serious: No
  Sender: FDA-Public Use
  Company Number: A0869736A

PATIENT
  Age: 75 Year
  Sex: Female
  Weight: 49.1 kg

DRUGS (4)
  1. ADVAIR DISKUS 100/50 [Suspect]
     Dosage: 1PUFF PER DAY
     Route: 055
     Dates: start: 20100428, end: 20100501
  2. OXYGEN [Concomitant]
  3. ALBUTEROL SULFATE [Concomitant]
     Route: 055
  4. PREDNISONE [Concomitant]

REACTIONS (7)
  - HYPERHIDROSIS [None]
  - ILL-DEFINED DISORDER [None]
  - PYREXIA [None]
  - RASH [None]
  - SWOLLEN TONGUE [None]
  - TOOTH LOSS [None]
  - URTICARIA [None]
